FAERS Safety Report 9191663 (Version 2)
Quarter: 2013Q2

REPORT INFORMATION
  Report Type: Spontaneous
  Country: GB (occurrence: GB)
  Receive Date: 20130326
  Receipt Date: 20130412
  Transmission Date: 20140414
  Serious: Yes (Other)
  Sender: FDA-Public Use
  Company Number: GB-B.I. PHARMACEUTICALS,INC./RIDGEFIELD-2013-UK-00361UK

PATIENT
  Age: 75 Year
  Sex: Male

DRUGS (3)
  1. PRADAXA [Suspect]
  2. METOPROLOL TARTRATE [Suspect]
     Indication: ATRIAL FIBRILLATION
     Dosage: 50 MG
     Route: 048
     Dates: start: 20130318
  3. CETRABEN [Concomitant]
     Indication: DRY SKIN
     Route: 061

REACTIONS (4)
  - Atrial fibrillation [Unknown]
  - Dyspepsia [Unknown]
  - Dizziness [Unknown]
  - Balance disorder [Unknown]
